FAERS Safety Report 8258290 (Version 2)
Quarter: 2012Q4

REPORT INFORMATION
  Report Type: 
  Country: TW (occurrence: TW)
  Receive Date: 20111122
  Receipt Date: 20121018
  Transmission Date: 20130627
  Serious: Yes (Life-Threatening, Other)
  Sender: FDA-Public Use
  Company Number: TW-RANBAXY-2011R1-50583

PATIENT
  Age: 68 Year
  Sex: Male

DRUGS (2)
  1. MINOCYCLINE HYDROCHLORIDE [Suspect]
     Indication: PULMONARY AIR LEAKAGE
     Dosage: UNK
     Route: 034
  2. LIDOCAINE [Concomitant]
     Indication: PULMONARY AIR LEAKAGE
     Dosage: UNK
     Route: 034

REACTIONS (1)
  - Cardio-respiratory arrest [Recovering/Resolving]
